FAERS Safety Report 5329492-0 (Version None)
Quarter: 2007Q2

REPORT INFORMATION
  Report Type: 
  Country: None (occurrence: None)
  Receive Date: 20070221
  Receipt Date: 20060322
  Transmission Date: 20071010
  Serious: Yes (Other)
  Sender: FDA-Public Use
  Company Number: BDI-008058

PATIENT
  Sex: Male

DRUGS (3)
  1. ISOVUE-300 [Suspect]
     Indication: ABDOMINAL PAIN
     Dosage: 120 ML ONCE IV
     Route: 042
     Dates: start: 20060320, end: 20060320
  2. ISOVUE-300 [Suspect]
     Indication: COMPUTERISED TOMOGRAM ABDOMEN
     Dosage: 120 ML ONCE IV
     Route: 042
     Dates: start: 20060320, end: 20060320
  3. GLUCOPHAGE [Concomitant]

REACTIONS (3)
  - CONTRAST MEDIA REACTION [None]
  - DYSPHONIA [None]
  - WHEEZING [None]
